FAERS Safety Report 5073560-8 (Version None)
Quarter: 2006Q3

REPORT INFORMATION
  Report Type: 
  Country: None (occurrence: None)
  Receive Date: 20060808
  Receipt Date: 20060726
  Transmission Date: 20061208
  Serious: Yes (Other)
  Sender: FDA-Public Use
  Company Number: PHBS2006BR11426

PATIENT
  Age: 55 Year
  Sex: Male
  Weight: 115 kg

DRUGS (4)
  1. TRILEPTAL [Suspect]
     Indication: BIPOLAR DISORDER
     Dosage: 1200 MG/DAY
     Route: 048
  2. FRONTAL [Concomitant]
     Indication: SLEEP DISORDER
     Dosage: 3 TAB/NIGHT
     Route: 048
  3. DORMONID [Concomitant]
     Dosage: 1.5 TAB/DAY
     Route: 048
  4. ABILIFY [Concomitant]
     Indication: BIPOLAR DISORDER
     Route: 048

REACTIONS (3)
  - AMNESIA [None]
  - DEPRESSION [None]
  - MOOD ALTERED [None]
